FAERS Safety Report 25190529 (Version 3)
Quarter: 2025Q2

REPORT INFORMATION
  Report Type: Report from Study
  Country: US (occurrence: US)
  Receive Date: 20250411
  Receipt Date: 20250505
  Transmission Date: 20250716
  Serious: Yes (Death)
  Sender: ABBVIE
  Company Number: US-ABBVIE-6226667

PATIENT
  Age: 76 Year
  Sex: Female

DRUGS (1)
  1. HUMIRA [Suspect]
     Active Substance: ADALIMUMAB
     Indication: Rheumatoid arthritis
     Route: 058
     Dates: start: 202206

REACTIONS (1)
  - Death [Fatal]

NARRATIVE: CASE EVENT DATE: 20250402
